FAERS Safety Report 26144630 (Version 2)
Quarter: 2025Q4

REPORT INFORMATION
  Report Type: Spontaneous
  Country: AR (occurrence: AR)
  Receive Date: 20251211
  Receipt Date: 20251216
  Transmission Date: 20260118
  Serious: No
  Sender: PFIZER
  Company Number: AR-PFIZER INC-202500241621

PATIENT
  Sex: Male

DRUGS (1)
  1. GENOTROPIN [Suspect]
     Active Substance: SOMATROPIN
     Dosage: UNK

REACTIONS (2)
  - Device information output issue [Unknown]
  - Drug dose omission by device [Unknown]
